FAERS Safety Report 24307830 (Version 1)
Quarter: 2024Q3

REPORT INFORMATION
  Report Type: Report from Study
  Country: ZA (occurrence: None)
  Receive Date: 20240911
  Receipt Date: 20240911
  Transmission Date: 20241017
  Serious: Yes (Death)
  Sender: ASTRAZENECA
  Company Number: 2024A205005

PATIENT
  Age: 71 Year
  Sex: Male

DRUGS (7)
  1. BUDESONIDE\FORMOTEROL [Suspect]
     Active Substance: BUDESONIDE\FORMOTEROL
     Indication: Asthma
     Dosage: 160 UG/INHAL; FREQUENCY UNKNOWN UNKNOWN
     Route: 055
  2. AMLODIPINE BESYLATE [Concomitant]
     Active Substance: AMLODIPINE BESYLATE
     Indication: Hypertension
     Route: 048
  3. HYDROCHLOROTHIAZIDE\LOSARTAN POTASSIUM [Concomitant]
     Active Substance: HYDROCHLOROTHIAZIDE\LOSARTAN POTASSIUM
     Indication: Hypertension
     Route: 048
  4. ADCO-TALOMIL [Concomitant]
     Indication: Mental disorder
     Route: 048
  5. OMIFLUX [Concomitant]
     Indication: Gastrooesophageal reflux disease
     Route: 048
  6. BUDEFLAM HFA [Concomitant]
     Indication: Rhinitis allergic
     Dosage: 200UG/INHAL
     Route: 055
  7. ALBUTEROL [Concomitant]
     Active Substance: ALBUTEROL
     Indication: Bronchospasm
     Dosage: 300UG/INHAL
     Route: 055

REACTIONS (1)
  - Illness [Fatal]
